FAERS Safety Report 4302189-1 (Version None)
Quarter: 2004Q1

REPORT INFORMATION
  Report Type: 
  Country: None (occurrence: None)
  Receive Date: 20040220
  Receipt Date: 20020813
  Transmission Date: 20041129
  Serious: Yes (Hospitalization)
  Sender: FDA-Public Use
  Company Number: 2002003702

PATIENT
  Age: 26 Year
  Sex: Male

DRUGS (2)
  1. GEODON [Suspect]
     Indication: PSYCHOTIC DISORDER
     Dosage: 80 MG (BID), ORAL
     Route: 048
  2. ALPRAZOLAM [Suspect]
     Indication: ILL-DEFINED DISORDER

REACTIONS (2)
  - OVERDOSE [None]
  - SUICIDE ATTEMPT [None]
